FAERS Safety Report 17259129 (Version 1)
Quarter: 2020Q1

REPORT INFORMATION
  Report Type: Spontaneous
  Country: IT (occurrence: IT)
  Receive Date: 20200110
  Receipt Date: 20200110
  Transmission Date: 20200409
  Serious: Yes (Other)
  Sender: FDA-Public Use
  Company Number: IT-MYLANLABS-2020M1003275

PATIENT
  Age: 72 Year
  Sex: Male

DRUGS (6)
  1. ZANTAC [Concomitant]
     Active Substance: RANITIDINE HYDROCHLORIDE
  2. CHLORPHENAMINE [Concomitant]
     Active Substance: CHLORPHENIRAMINE MALEATE
  3. PACLITAXEL. [Suspect]
     Active Substance: PACLITAXEL
     Indication: OESOPHAGEAL NEOPLASM
     Dosage: UNK
     Route: 042
     Dates: start: 20190806
  4. CYRAMZA [Suspect]
     Active Substance: RAMUCIRUMAB
     Indication: OESOPHAGEAL NEOPLASM
     Dosage: UNK
     Route: 042
     Dates: start: 20190806
  5. ONDANSETRON HYDROCHLORIDE. [Concomitant]
     Active Substance: ONDANSETRON HYDROCHLORIDE
  6. METFORMIN [Concomitant]
     Active Substance: METFORMIN HYDROCHLORIDE
     Indication: TYPE 2 DIABETES MELLITUS

REACTIONS (8)
  - Sleep disorder [Unknown]
  - Erythropenia [Unknown]
  - Skin exfoliation [Unknown]
  - Lacrimation disorder [Unknown]
  - Leukopenia [Unknown]
  - Vision blurred [Unknown]
  - Asthenia [Unknown]
  - Dry mouth [Unknown]
